FAERS Safety Report 9162699 (Version 2)
Quarter: 2013Q1

REPORT INFORMATION
  Report Type: Spontaneous
  Country: GB (occurrence: None)
  Receive Date: 20130312
  Receipt Date: 20130325
  Transmission Date: 20140127
  Serious: Yes (Death, Congenital Anomaly, Other)
  Sender: FDA-Public Use
  Company Number: GER/UKI/13/0028443

PATIENT
  Sex: 0

DRUGS (2)
  1. RISPERIDONE (RISPERIDONE) [Suspect]
     Indication: PRODUCT USED FOR UNKNOWN INDICATION
     Route: 064
  2. XEPLION [Suspect]
     Indication: PRODUCT USED FOR UNKNOWN INDICATION
     Dosage: CYCLICAL
     Route: 064
     Dates: start: 20120622, end: 20121114

REACTIONS (3)
  - Maternal drugs affecting foetus [None]
  - Abortion induced [None]
  - Foetal disorder [None]
